FAERS Safety Report 6130725-1 (Version None)
Quarter: 2009Q1

REPORT INFORMATION
  Report Type: 
  Country: None (occurrence: None)
  Receive Date: 20090325
  Receipt Date: 20090316
  Transmission Date: 20090719
  Serious: Yes (Other)
  Sender: FDA-Public Use
  Company Number: US-JNJFOC-20061003409

PATIENT
  Sex: Female
  Weight: 108.86 kg

DRUGS (7)
  1. RISPERDAL [Suspect]
     Indication: PSYCHOTIC DISORDER
  2. OLANZAPINE [Suspect]
  3. OLANZAPINE [Suspect]
     Indication: PSYCHOTIC DISORDER
  4. RISPERDAL CONSTA [Suspect]
     Indication: SCHIZOPHRENIA
     Route: 030
  5. SEROQUEL [Suspect]
     Indication: PSYCHOTIC DISORDER
  6. LEVOTHYROXINE [Concomitant]
  7. WELLBUTRIN [Concomitant]

REACTIONS (4)
  - DIABETES MELLITUS [None]
  - DRUG INEFFECTIVE [None]
  - ELECTROCARDIOGRAM QT PROLONGED [None]
  - WEIGHT INCREASED [None]
